FAERS Safety Report 18519283 (Version 2)
Quarter: 2020Q4

REPORT INFORMATION
  Report Type: Report from Study
  Country: PL (occurrence: PL)
  Receive Date: 20201118
  Receipt Date: 20201125
  Transmission Date: 20210114
  Serious: Yes (Death, Hospitalization, Other)
  Sender: FDA-Public Use
  Company Number: PL-BRISTOL-MYERS SQUIBB COMPANY-BMS-2020-021057

PATIENT
  Age: 70 Year
  Sex: Female
  Weight: 59 kg

DRUGS (14)
  1. TRADJENTA [Concomitant]
     Active Substance: LINAGLIPTIN
     Indication: PRODUCT USED FOR UNKNOWN INDICATION
     Dosage: 5 MILLIGRAM
     Route: 048
     Dates: start: 20200116, end: 20200303
  2. PRESTILOL [Concomitant]
     Active Substance: BISOPROLOL FUMARATE\PERINDOPRIL ARGININE
     Indication: PRODUCT USED FOR UNKNOWN INDICATION
     Dosage: 1 DOSAGE FORM
     Route: 048
     Dates: start: 2015
  3. PLACEBO [Suspect]
     Active Substance: UNSPECIFIED INGREDIENT
     Indication: RENAL CELL CARCINOMA
     Dosage: 50 MILLILITER
     Route: 042
     Dates: start: 20191217
  4. NIVOLUMAB [Suspect]
     Active Substance: NIVOLUMAB
     Indication: RENAL CELL CARCINOMA
     Dosage: 100 MILLILITER
     Route: 042
     Dates: start: 20191217
  5. FURAGINUM [Concomitant]
     Active Substance: FURAZIDINE
     Indication: PROPHYLAXIS
     Dosage: 100 MILLIGRAM
     Route: 048
     Dates: start: 201911
  6. HYDROCHLOROTHIAZIDUM [Concomitant]
     Indication: PRODUCT USED FOR UNKNOWN INDICATION
     Dosage: 12.5 MILLIGRAM
     Route: 048
     Dates: start: 20200302
  7. TORSEMED [Concomitant]
     Active Substance: TORSEMIDE
     Indication: PRODUCT USED FOR UNKNOWN INDICATION
     Dosage: 10 MILLIGRAM
     Route: 048
     Dates: start: 20191203
  8. ACARD [ACETYLSALICYLIC ACID] [Concomitant]
     Indication: PROPHYLAXIS
     Dosage: 75 MILLIGRAM
     Route: 048
     Dates: start: 2015
  9. FORMETIC [Concomitant]
     Active Substance: METFORMIN HYDROCHLORIDE
     Indication: PRODUCT USED FOR UNKNOWN INDICATION
     Dosage: 500 MILLIGRAM
     Route: 048
     Dates: start: 2014
  10. FUROXIN [Concomitant]
     Indication: PROPHYLAXIS
     Dosage: 1 DOSAGE FORM = 2 UNITS NOS
     Route: 048
     Dates: start: 20200302
  11. TORASEMIDUM [Concomitant]
     Indication: PRODUCT USED FOR UNKNOWN INDICATION
     Route: 048
     Dates: start: 2015
  12. ASPARGIN [ASPARTIC ACID] [Concomitant]
     Indication: PROPHYLAXIS
     Dosage: 250 MILLIGRAM
     Route: 048
     Dates: start: 201911
  13. VIT.D3 [Concomitant]
     Indication: PROPHYLAXIS
     Dosage: 1 DOSAGE FORM
     Route: 048
     Dates: start: 201906
  14. EUTHYROX [Concomitant]
     Active Substance: LEVOTHYROXINE SODIUM
     Indication: PRODUCT USED FOR UNKNOWN INDICATION
     Dosage: 37.5 MILLIGRAM
     Route: 048
     Dates: start: 2015

REACTIONS (2)
  - Death [Fatal]
  - Hyponatraemia [Recovered/Resolved]

NARRATIVE: CASE EVENT DATE: 20200309
